FAERS Safety Report 25241968 (Version 2)
Quarter: 2025Q3

REPORT INFORMATION
  Report Type: Spontaneous
  Country: CN (occurrence: CN)
  Receive Date: 20250426
  Receipt Date: 20250805
  Transmission Date: 20251021
  Serious: Yes (Hospitalization, Other)
  Sender: ALEXION PHARMACEUTICALS
  Company Number: CN-ASTRAZENECA-202504CHN018211CN

PATIENT
  Age: 61 Year
  Sex: Female
  Weight: 35 kg

DRUGS (1)
  1. TAGRISSO [Suspect]
     Active Substance: OSIMERTINIB
     Indication: Therapy cessation
     Dosage: 80 MILLIGRAM, QD
     Dates: start: 20250407, end: 20250411

REACTIONS (2)
  - Myelosuppression [Unknown]
  - Rash [Unknown]

NARRATIVE: CASE EVENT DATE: 20250411
